FAERS Safety Report 10812105 (Version 1)
Quarter: 2015Q1

REPORT INFORMATION
  Report Type: Report from Study
  Country: CA (occurrence: None)
  Receive Date: 20150212
  Receipt Date: 20150212
  Transmission Date: 20150721
  Serious: Yes (Hospitalization)
  Sender: FDA-Public Use
  Company Number: CA15-102

PATIENT
  Age: 26 Year
  Sex: Female

DRUGS (6)
  1. METOCLOPRAMIDE. [Suspect]
     Active Substance: METOCLOPRAMIDE
  2. TYLENOL [Suspect]
     Active Substance: ACETAMINOPHEN
  3. REMICADE [Suspect]
     Active Substance: INFLIXIMAB
     Indication: CROHN^S DISEASE
     Route: 042
  4. DICLECTIN [Suspect]
     Active Substance: DOXYLAMINE\PYRIDOXINE
  5. IMURAN [Suspect]
     Active Substance: AZATHIOPRINE
  6. ZOFRAN [Suspect]
     Active Substance: ONDANSETRON HYDROCHLORIDE

REACTIONS (3)
  - Vomiting in pregnancy [None]
  - Vaginal haemorrhage [None]
  - Exposure during pregnancy [None]
